FAERS Safety Report 11107231 (Version 1)
Quarter: 2015Q2

REPORT INFORMATION
  Report Type: Spontaneous
  Country: US (occurrence: None)
  Receive Date: 20150511
  Receipt Date: 20150511
  Transmission Date: 20150821
  Serious: No
  Sender: FDA-Public Use
  Company Number: None

PATIENT
  Age: 45 Year
  Sex: Female
  Weight: 61.24 kg

DRUGS (6)
  1. VENLAFAXINE [Concomitant]
     Active Substance: VENLAFAXINE HYDROCHLORIDE
  2. VITAMIN D3 [Concomitant]
     Active Substance: CHOLECALCIFEROL
  3. COPAXONE [Suspect]
     Active Substance: GLATIRAMER ACETATE
     Indication: MULTIPLE SCLEROSIS
     Dates: start: 20141205, end: 20150403
  4. MULTIVITAMIN [Concomitant]
     Active Substance: VITAMINS
  5. NORTRIPTYLINE HCL [Concomitant]
     Active Substance: NORTRIPTYLINE HYDROCHLORIDE
  6. VITAMIN K2 [Concomitant]
     Active Substance: MENAQUINONE 6

REACTIONS (6)
  - Hyperhidrosis [None]
  - Throat tightness [None]
  - Generalised erythema [None]
  - Chest pain [None]
  - Dyspnoea [None]
  - Speech disorder [None]

NARRATIVE: CASE EVENT DATE: 20150403
